FAERS Safety Report 10196965 (Version 1)
Quarter: 2014Q2

REPORT INFORMATION
  Report Type: Spontaneous
  Country: CA (occurrence: CA)
  Receive Date: 20140527
  Receipt Date: 20140527
  Transmission Date: 20141212
  Serious: Yes (Other)
  Sender: FDA-Public Use
  Company Number: CA-PFIZER INC-2014140627

PATIENT
  Sex: 0

DRUGS (1)
  1. ZELDOX [Suspect]
     Dosage: UNK

REACTIONS (1)
  - Renal impairment [Unknown]
